FAERS Safety Report 10512681 (Version 1)
Quarter: 2014Q4

REPORT INFORMATION
  Report Type: Spontaneous
  Country: FR (occurrence: FR)
  Receive Date: 20141012
  Receipt Date: 20141012
  Transmission Date: 20150528
  Serious: Yes (Hospitalization, Other)
  Sender: FDA-Public Use
  Company Number: FR-MYLANLABS-2014M1006733

PATIENT

DRUGS (3)
  1. BACLOFEN. [Suspect]
     Active Substance: BACLOFEN
     Indication: OFF LABEL USE
  2. METFORMIN [Concomitant]
     Active Substance: METFORMIN HYDROCHLORIDE
     Indication: TYPE 2 DIABETES MELLITUS
     Dosage: 1700 MG/D
     Route: 065
  3. BACLOFEN. [Suspect]
     Active Substance: BACLOFEN
     Indication: ALCOHOL USE
     Dosage: 120 MG/D
     Route: 065

REACTIONS (9)
  - Agitation [Recovering/Resolving]
  - Diabetic metabolic decompensation [None]
  - Confusional state [None]
  - Disorientation [None]
  - Drug withdrawal syndrome [Recovering/Resolving]
  - Off label use [None]
  - Vomiting [None]
  - Hyperthermia [None]
  - Dehydration [Recovering/Resolving]
